FAERS Safety Report 23234436 (Version 1)
Quarter: 2023Q4

REPORT INFORMATION
  Report Type: Spontaneous
  Country: None (occurrence: FR)
  Receive Date: 20231128
  Receipt Date: 20231128
  Transmission Date: 20240110
  Serious: Yes (Hospitalization)
  Sender: FDA-Public Use
  Company Number: FR-B.Braun Medical Inc.-2148746

PATIENT
  Age: 67 Year
  Sex: Male
  Weight: 86 kg

DRUGS (4)
  1. CEFEPIME HYDROCHLORIDE AND DEXTROSE [Suspect]
     Active Substance: CEFEPIME HYDROCHLORIDE
     Indication: Bacterial infection
     Route: 042
  2. PIPERACILLIN AND TAZOBACTAM [Suspect]
     Active Substance: PIPERACILLIN SODIUM\TAZOBACTAM SODIUM
  3. METRONIDAZOLE [Suspect]
     Active Substance: METRONIDAZOLE
  4. LINEZOLID [Suspect]
     Active Substance: LINEZOLID

REACTIONS (3)
  - Cholestasis [None]
  - Hepatic cytolysis [None]
  - Jaundice [None]
